FAERS Safety Report 8405674-6 (Version None)
Quarter: 2012Q2

REPORT INFORMATION
  Report Type: 
  Country: None (occurrence: None)
  Receive Date: 20120604
  Receipt Date: 20120525
  Transmission Date: 20120825
  Serious: No
  Sender: FDA-Public Use
  Company Number: US-BIOGENIDEC-2012BI018779

PATIENT
  Sex: Female

DRUGS (2)
  1. AVONEX [Suspect]
     Route: 030
     Dates: start: 20081107
  2. AVONEX [Suspect]
     Indication: MULTIPLE SCLEROSIS
     Route: 030
     Dates: end: 20040701

REACTIONS (6)
  - MUSCLE ATROPHY [None]
  - INJECTION SITE PAIN [None]
  - STRESS [None]
  - INJECTION SITE HAEMORRHAGE [None]
  - INJURY ASSOCIATED WITH DEVICE [None]
  - DISTURBANCE IN ATTENTION [None]
